FAERS Safety Report 21755012 (Version 2)
Quarter: 2022Q4

REPORT INFORMATION
  Report Type: Spontaneous
  Country: US (occurrence: US)
  Receive Date: 20221220
  Receipt Date: 20221220
  Transmission Date: 20230113
  Serious: No
  Sender: FDA-Public Use
  Company Number: US-RECKITT BENCKISER HEALTHCARE INT LIMITED-RB-083766-2022

PATIENT
  Age: 55 Year
  Sex: Female
  Weight: 58.96 kg

DRUGS (1)
  1. DELSYM [Suspect]
     Active Substance: DEXTROMETHORPHAN
     Indication: Product used for unknown indication
     Dosage: UNK,  40 ML IN 24 HOURS
     Route: 048
     Dates: start: 20220208

REACTIONS (3)
  - Dizziness [Recovered/Resolved]
  - Dysstasia [Recovered/Resolved]
  - Accidental overdose [Recovered/Resolved]
